FAERS Safety Report 9822000 (Version 2)
Quarter: 2014Q1

REPORT INFORMATION
  Report Type: Report from Study
  Country: US (occurrence: US)
  Receive Date: 20140116
  Receipt Date: 20140116
  Transmission Date: 20141002
  Serious: Yes (Other)
  Sender: FDA-Public Use
  Company Number: US-JNJFOC-20131101622

PATIENT
  Sex: Female

DRUGS (2)
  1. SIMPONI [Suspect]
     Indication: RHEUMATOID ARTHRITIS
     Route: 058
     Dates: start: 201110, end: 2012
  2. SIMPONI [Suspect]
     Indication: RHEUMATOID ARTHRITIS
     Route: 058
     Dates: start: 201309

REACTIONS (6)
  - Asthma [Unknown]
  - Tympanic membrane perforation [Unknown]
  - Infection [Recovered/Resolved]
  - Bone cyst [Recovered/Resolved]
  - Abscess [Unknown]
  - Infection [Unknown]
